FAERS Safety Report 8580884-6 (Version None)
Quarter: 2012Q3

REPORT INFORMATION
  Report Type: 
  Country: None (occurrence: None)
  Receive Date: 20120726
  Receipt Date: 20120716
  Transmission Date: 20120928
  Serious: Yes (Life-Threatening)
  Sender: FDA-Public Use
  Company Number: 2012000181

PATIENT
  Age: 45 Year
  Sex: Female
  Weight: 63 kg

DRUGS (6)
  1. APO-LEFLUNOMIDE (LEFLUNOMIDE) [Concomitant]
  2. CELEBREX [Concomitant]
  3. LEVOTHYROXINE SODIUM [Concomitant]
  4. AMLODIPINE [Concomitant]
  5. ACEON [Suspect]
     Indication: PRODUCT USED FOR UNKNOWN INDICATION
     Dosage: 2 MG, QD, ORAL
     Route: 048
     Dates: start: 20120101
  6. HYDROCHLOROTHIAZIDE [Concomitant]

REACTIONS (18)
  - CHOKING [None]
  - DIARRHOEA [None]
  - DYSPNOEA [None]
  - VOMITING [None]
  - SWOLLEN TONGUE [None]
  - DYSPHAGIA [None]
  - SNEEZING [None]
  - NASAL CONGESTION [None]
  - WHEEZING [None]
  - NEURALGIA [None]
  - ORAL ADMINISTRATION COMPLICATION [None]
  - PHARYNGEAL OEDEMA [None]
  - COUGH [None]
  - FATIGUE [None]
  - THROAT IRRITATION [None]
  - DYSPHONIA [None]
  - NON-CARDIAC CHEST PAIN [None]
  - FEELING COLD [None]
